FAERS Safety Report 8869061 (Version 1)
Quarter: 2012Q4

REPORT INFORMATION
  Report Type: Spontaneous
  Country: JP (occurrence: None)
  Receive Date: 20121022
  Receipt Date: 20121022
  Transmission Date: 20130627
  Serious: Yes (Hospitalization)
  Sender: FDA-Public Use
  Company Number: 2012MA012441

PATIENT
  Age: 64 Year
  Sex: Female

DRUGS (4)
  1. CUBICIN [Suspect]
     Indication: STAPHYLOCOCCAL INFECTION
     Dosage: U U ; UNK;  IV
     Route: 042
     Dates: start: 20120420, end: 20120423
  2. ZOSYN (PIP / TAZO) [Suspect]
     Indication: FEBRILE NEUTROPENIA
     Route: 042
     Dates: start: 20120418, end: 20120423
  3. ACICLOVIR [Concomitant]
  4. CRAVIT [Concomitant]

REACTIONS (1)
  - Rash [None]
